FAERS Safety Report 6670790-6 (Version None)
Quarter: 2010Q2

REPORT INFORMATION
  Report Type: 
  Country: None (occurrence: None)
  Receive Date: 20100406
  Receipt Date: 20100406
  Transmission Date: 20101027
  Serious: Yes (Death)
  Sender: FDA-Public Use
  Company Number: None

PATIENT
  Sex: Female
  Weight: 96.5 kg

DRUGS (1)
  1. PRALATREXATE 20MG ALLOS THERAPEUTICS [Suspect]
     Indication: T-CELL LYMPHOMA REFRACTORY
     Dosage: 60MG ONE TIME IV BOLUS
     Route: 040
     Dates: start: 20100317, end: 20100317

REACTIONS (2)
  - STEVENS-JOHNSON SYNDROME [None]
  - TOXIC EPIDERMAL NECROLYSIS [None]
